FAERS Safety Report 25807830 (Version 4)
Quarter: 2025Q4

REPORT INFORMATION
  Report Type: Spontaneous
  Country: EU (occurrence: EU)
  Receive Date: 20250916
  Receipt Date: 20251114
  Transmission Date: 20260118
  Serious: Yes (Death, Other)
  Sender: MYLAN
  Company Number: EU-PFIZER INC-PV202500106604

PATIENT
  Age: 79 Year
  Sex: Male

DRUGS (32)
  1. DOXORUBICIN [Suspect]
     Active Substance: DOXORUBICIN
     Indication: Diffuse large B-cell lymphoma stage IV
     Dosage: RECEIVED A TOTAL OF SIX CYCLES UNDER R-CHOP REGIMEN
  2. DOXORUBICIN [Suspect]
     Active Substance: DOXORUBICIN
     Dosage: RECEIVED A TOTAL OF SIX CYCLES UNDER R-CHOP REGIMEN
     Route: 065
  3. DOXORUBICIN [Suspect]
     Active Substance: DOXORUBICIN
     Dosage: RECEIVED A TOTAL OF SIX CYCLES UNDER R-CHOP REGIMEN
     Route: 065
  4. DOXORUBICIN [Suspect]
     Active Substance: DOXORUBICIN
     Dosage: RECEIVED A TOTAL OF SIX CYCLES UNDER R-CHOP REGIMEN
  5. PREDNISONE [Suspect]
     Active Substance: PREDNISONE
     Indication: Diffuse large B-cell lymphoma stage IV
     Dosage: UNK (SIX COURSES), R-CHOP
  6. PREDNISONE [Suspect]
     Active Substance: PREDNISONE
     Dosage: UNK (SIX COURSES), R-CHOP
     Route: 065
  7. PREDNISONE [Suspect]
     Active Substance: PREDNISONE
     Dosage: UNK (SIX COURSES), R-CHOP
     Route: 065
  8. PREDNISONE [Suspect]
     Active Substance: PREDNISONE
     Dosage: UNK (SIX COURSES), R-CHOP
  9. AZITHROMYCIN [Suspect]
     Active Substance: AZITHROMYCIN
     Indication: Mycobacterium haemophilum infection
     Dosage: UNK
  10. AZITHROMYCIN [Suspect]
     Active Substance: AZITHROMYCIN
     Dosage: UNK
     Route: 065
  11. AZITHROMYCIN [Suspect]
     Active Substance: AZITHROMYCIN
     Dosage: UNK
     Route: 065
  12. AZITHROMYCIN [Suspect]
     Active Substance: AZITHROMYCIN
     Dosage: UNK
  13. RITUXIMAB [Suspect]
     Active Substance: RITUXIMAB
     Indication: Diffuse large B-cell lymphoma stage IV
     Dosage: RECEIVED A TOTAL OF SIX CYCLES UNDER R-CHOP REGIMEN
  14. RITUXIMAB [Suspect]
     Active Substance: RITUXIMAB
     Indication: Mycobacterium haemophilum infection
     Dosage: RECEIVED A TOTAL OF SIX CYCLES UNDER R-CHOP REGIMEN
     Route: 065
  15. RITUXIMAB [Suspect]
     Active Substance: RITUXIMAB
     Dosage: RECEIVED A TOTAL OF SIX CYCLES UNDER R-CHOP REGIMEN
     Route: 065
  16. RITUXIMAB [Suspect]
     Active Substance: RITUXIMAB
     Dosage: RECEIVED A TOTAL OF SIX CYCLES UNDER R-CHOP REGIMEN
  17. CYCLOPHOSPHAMIDE [Suspect]
     Active Substance: CYCLOPHOSPHAMIDE
     Indication: Diffuse large B-cell lymphoma stage IV
     Dosage: RECEIVED A TOTAL OF SIX CYCLES UNDER R-CHOP REGIMEN
  18. CYCLOPHOSPHAMIDE [Suspect]
     Active Substance: CYCLOPHOSPHAMIDE
     Dosage: RECEIVED A TOTAL OF SIX CYCLES UNDER R-CHOP REGIMEN
     Route: 065
  19. CYCLOPHOSPHAMIDE [Suspect]
     Active Substance: CYCLOPHOSPHAMIDE
     Dosage: RECEIVED A TOTAL OF SIX CYCLES UNDER R-CHOP REGIMEN
     Route: 065
  20. CYCLOPHOSPHAMIDE [Suspect]
     Active Substance: CYCLOPHOSPHAMIDE
     Dosage: RECEIVED A TOTAL OF SIX CYCLES UNDER R-CHOP REGIMEN
  21. VINCRISTINE SULFATE [Suspect]
     Active Substance: VINCRISTINE SULFATE
     Indication: Diffuse large B-cell lymphoma stage IV
     Dosage: UNK (SIX COURSES)
  22. VINCRISTINE SULFATE [Suspect]
     Active Substance: VINCRISTINE SULFATE
     Dosage: UNK (SIX COURSES)
     Route: 065
  23. VINCRISTINE SULFATE [Suspect]
     Active Substance: VINCRISTINE SULFATE
     Dosage: UNK (SIX COURSES)
     Route: 065
  24. VINCRISTINE SULFATE [Suspect]
     Active Substance: VINCRISTINE SULFATE
     Dosage: UNK (SIX COURSES)
  25. PREDNISOLONE [Suspect]
     Active Substance: PREDNISOLONE
     Indication: Diffuse large B-cell lymphoma stage IV
     Dosage: RECEIVED A TOTAL OF SIX CYCLES UNDER R-CHOP REGIMEN
  26. PREDNISOLONE [Suspect]
     Active Substance: PREDNISOLONE
     Dosage: RECEIVED A TOTAL OF SIX CYCLES UNDER R-CHOP REGIMEN
     Route: 065
  27. PREDNISOLONE [Suspect]
     Active Substance: PREDNISOLONE
     Dosage: RECEIVED A TOTAL OF SIX CYCLES UNDER R-CHOP REGIMEN
     Route: 065
  28. PREDNISOLONE [Suspect]
     Active Substance: PREDNISOLONE
     Dosage: RECEIVED A TOTAL OF SIX CYCLES UNDER R-CHOP REGIMEN
  29. ETHAMBUTOL [Suspect]
     Active Substance: ETHAMBUTOL HYDROCHLORIDE
     Indication: Mycobacterium haemophilum infection
     Dosage: UNK
  30. ETHAMBUTOL [Suspect]
     Active Substance: ETHAMBUTOL HYDROCHLORIDE
     Dosage: UNK
     Route: 065
  31. ETHAMBUTOL [Suspect]
     Active Substance: ETHAMBUTOL HYDROCHLORIDE
     Dosage: UNK
     Route: 065
  32. ETHAMBUTOL [Suspect]
     Active Substance: ETHAMBUTOL HYDROCHLORIDE
     Dosage: UNK

REACTIONS (9)
  - Mycobacterium haemophilum infection [Fatal]
  - Brain oedema [Fatal]
  - Sepsis [Fatal]
  - Drug ineffective [Fatal]
  - Abnormal behaviour [Not Recovered/Not Resolved]
  - Fatigue [Unknown]
  - Peripheral swelling [Not Recovered/Not Resolved]
  - Skin ulcer [Not Recovered/Not Resolved]
  - Pyrexia [Unknown]
